FAERS Safety Report 6757706-9 (Version None)
Quarter: 2010Q2

REPORT INFORMATION
  Report Type: 
  Country: None (occurrence: None)
  Receive Date: 20100604
  Receipt Date: 20100604
  Transmission Date: 20101027
  Serious: Yes (Other)
  Sender: FDA-Public Use
  Company Number: None

PATIENT
  Sex: Male
  Weight: 115.6672 kg

DRUGS (1)
  1. TYLENOL EXTRA STRENGTH 500MG [Suspect]
     Indication: ANALGESIC THERAPY
     Dosage: 1 CAPLET 1 AT BEDTIME PO
     Route: 048
     Dates: start: 20100501, end: 20100602

REACTIONS (6)
  - ABDOMINAL DISTENSION [None]
  - DIARRHOEA [None]
  - ERUCTATION [None]
  - FLATULENCE [None]
  - PRODUCT QUALITY ISSUE [None]
  - VOMITING [None]
